FAERS Safety Report 9773221 (Version 1)
Quarter: 2013Q4

REPORT INFORMATION
  Report Type: Spontaneous
  Country: US (occurrence: US)
  Receive Date: 20131219
  Receipt Date: 20131219
  Transmission Date: 20140711
  Serious: Yes (Disabling, Other)
  Sender: FDA-Public Use
  Company Number: US-GLAXOSMITHKLINE-A1053744A

PATIENT
  Age: 42 Year
  Sex: Male

DRUGS (2)
  1. MEKINIST [Suspect]
     Indication: METASTATIC MALIGNANT MELANOMA
     Route: 048
     Dates: start: 201309
  2. NO CONCURRENT MEDICATION [Concomitant]

REACTIONS (3)
  - Hyperpyrexia [Unknown]
  - Chills [Unknown]
  - Tremor [Unknown]
